FAERS Safety Report 9298408 (Version 2)
Quarter: 2013Q2

REPORT INFORMATION
  Report Type: Spontaneous
  Country: US (occurrence: US)
  Receive Date: 20130520
  Receipt Date: 20130613
  Transmission Date: 20140414
  Serious: Yes (Hospitalization, Other)
  Sender: FDA-Public Use
  Company Number: US-009507513-1305USA011120

PATIENT
  Age: 50 Year
  Sex: Male

DRUGS (5)
  1. VICTRELIS [Suspect]
     Indication: HEPATITIS C
     Dosage: 800 MG, TID
     Route: 048
     Dates: start: 20130426, end: 201305
  2. VICTRELIS [Suspect]
     Dosage: 800 MG, TID
     Route: 048
     Dates: start: 201305
  3. VICTRELIS [Suspect]
     Dosage: UNK
     Dates: start: 20130603
  4. REBETOL [Suspect]
     Dosage: UNK
     Dates: start: 20130503
  5. PEGASYS [Suspect]
     Dosage: UNK
     Dates: start: 20130503

REACTIONS (3)
  - Gastrointestinal surgery [Recovering/Resolving]
  - Large intestine perforation [Recovering/Resolving]
  - Polyp [Recovered/Resolved]
